FAERS Safety Report 5574856-3 (Version None)
Quarter: 2007Q4

REPORT INFORMATION
  Report Type: 
  Country: None (occurrence: None)
  Receive Date: 20071130
  Receipt Date: 20070815
  Transmission Date: 20080405
  Serious: No
  Sender: FDA-Public Use
  Company Number: US200708005107

PATIENT
  Age: 62 Year
  Sex: Female
  Weight: 93 kg

DRUGS (6)
  1. BYETTA [Suspect]
     Indication: TYPE 2 DIABETES MELLITUS
     Dosage: 5 UG, 2/D, SUBCUTANEOUS ; 10 UG, 2/D, SUBCUTANEOUS ; 30 UG, SUBCUTANEOUS
     Route: 058
     Dates: start: 20070101, end: 20070201
  2. BYETTA [Suspect]
     Indication: TYPE 2 DIABETES MELLITUS
     Dosage: 5 UG, 2/D, SUBCUTANEOUS ; 10 UG, 2/D, SUBCUTANEOUS ; 30 UG, SUBCUTANEOUS
     Route: 058
     Dates: start: 20070815, end: 20070815
  3. BYETTA [Suspect]
     Indication: TYPE 2 DIABETES MELLITUS
     Dosage: 5 UG, 2/D, SUBCUTANEOUS ; 10 UG, 2/D, SUBCUTANEOUS ; 30 UG, SUBCUTANEOUS
     Route: 058
     Dates: start: 20070201
  4. GLYBURIDE [Concomitant]
  5. METFORMIN HCL [Concomitant]
  6. ACTOS /USA/ (PIOGLITAZONE HYDROCHLORIDE) [Concomitant]

REACTIONS (5)
  - ACCIDENTAL OVERDOSE [None]
  - BLOOD GLUCOSE DECREASED [None]
  - DIZZINESS [None]
  - INCORRECT DOSE ADMINISTERED [None]
  - INJECTION SITE IRRITATION [None]
